FAERS Safety Report 19906997 (Version 1)
Quarter: 2021Q3

REPORT INFORMATION
  Report Type: Spontaneous
  Country: US (occurrence: US)
  Receive Date: 20210930
  Receipt Date: 20210930
  Transmission Date: 20211014
  Serious: Yes (Other)
  Sender: FDA-Public Use
  Company Number: None

PATIENT
  Age: 37 Year
  Sex: Female
  Weight: 88.45 kg

DRUGS (3)
  1. QVAR [Suspect]
     Active Substance: BECLOMETHASONE DIPROPIONATE
  2. ALBUTEROL. [Suspect]
     Active Substance: ALBUTEROL
  3. LEXAPRO [Suspect]
     Active Substance: ESCITALOPRAM OXALATE

REACTIONS (4)
  - Prolonged labour [None]
  - Maternal drugs affecting foetus [None]
  - Maternal exposure timing unspecified [None]
  - Caesarean section [None]

NARRATIVE: CASE EVENT DATE: 20200703
